FAERS Safety Report 7201661-4 (Version None)
Quarter: 2010Q4

REPORT INFORMATION
  Report Type: 
  Country: None (occurrence: None)
  Receive Date: 20101229
  Receipt Date: 20101220
  Transmission Date: 20110411
  Serious: Yes (Other)
  Sender: FDA-Public Use
  Company Number: BE-BAYER-2010-006257

PATIENT
  Sex: Female

DRUGS (2)
  1. MIRENA [Suspect]
     Indication: PRODUCT USED FOR UNKNOWN INDICATION
     Dosage: 20 A?G, CONT
     Route: 015
  2. MIRENA [Suspect]
     Dosage: 20 A?G, CONT
     Route: 015

REACTIONS (2)
  - ABDOMINAL DISCOMFORT [None]
  - ECTOPIC PREGNANCY [None]
